FAERS Safety Report 25022165 (Version 2)
Quarter: 2025Q2

REPORT INFORMATION
  Report Type: Spontaneous
  Country: US (occurrence: US)
  Receive Date: 20250228
  Receipt Date: 20250620
  Transmission Date: 20250717
  Serious: Yes (Other)
  Sender: NOVO NORDISK
  Company Number: US-NOVOPROD-1318914

PATIENT
  Age: 35 Year
  Sex: Female
  Weight: 88.435 kg

DRUGS (4)
  1. WEGOVY [Suspect]
     Active Substance: SEMAGLUTIDE
     Indication: Obesity
     Dosage: 2.4 MG, QW
     Dates: start: 202311, end: 20240915
  2. PRENATAL MULTIVITAMIN + DHA [Concomitant]
     Indication: Pregnancy
     Route: 048
  3. METFORMIN [Concomitant]
     Active Substance: METFORMIN HYDROCHLORIDE
     Indication: Glucose tolerance impaired
     Dosage: 1000 MG, BID
     Route: 048
  4. ASPIRIN [Concomitant]
     Active Substance: ASPIRIN
     Indication: Pregnancy
     Dosage: 81 MG, QD
     Route: 048
     Dates: start: 20241217

REACTIONS (2)
  - Gestational diabetes [Not Recovered/Not Resolved]
  - Maternal exposure during pregnancy [Recovered/Resolved]

NARRATIVE: CASE EVENT DATE: 20240822
